FAERS Safety Report 13897929 (Version 2)
Quarter: 2018Q1

REPORT INFORMATION
  Report Type: Spontaneous
  Country: US (occurrence: US)
  Receive Date: 20170823
  Receipt Date: 20180226
  Transmission Date: 20180508
  Serious: No
  Sender: FDA-Public Use
  Company Number: US-CELGENEUS-USA-20170806628

PATIENT
  Sex: Male

DRUGS (4)
  1. METFORMIN [Concomitant]
     Active Substance: METFORMIN HYDROCHLORIDE
     Indication: DIABETES MELLITUS
     Route: 065
  2. LOSARTAN. [Concomitant]
     Active Substance: LOSARTAN
     Indication: BLOOD PRESSURE MANAGEMENT
     Route: 065
     Dates: start: 2011
  3. OTEZLA [Suspect]
     Active Substance: APREMILAST
     Indication: PSORIASIS
     Dosage: 60 MILLIGRAM
     Route: 048
     Dates: start: 201706, end: 2017
  4. OTEZLA [Suspect]
     Active Substance: APREMILAST
     Dosage: 60 MILLIGRAM
     Route: 048
     Dates: start: 2017

REACTIONS (2)
  - Psoriasis [Unknown]
  - Rash erythematous [Recovered/Resolved]

NARRATIVE: CASE EVENT DATE: 2017
